FAERS Safety Report 21028134 (Version 11)
Quarter: 2022Q4

REPORT INFORMATION
  Report Type: Spontaneous
  Country: GB (occurrence: None)
  Receive Date: 20220630
  Receipt Date: 20221021
  Transmission Date: 20230113
  Serious: Yes (Life-Threatening, Hospitalization, Disabling, Other)
  Sender: FDA-Public Use
  Company Number: 2022A239327

PATIENT
  Age: 56 Year
  Sex: Female
  Weight: 80 kg

DRUGS (22)
  1. OMEPRAZOLE [Interacting]
     Active Substance: OMEPRAZOLE
     Indication: Gastrooesophageal reflux disease
     Dosage: 200 MILLIGRAM, QD
     Route: 048
     Dates: start: 20190118, end: 20190120
  2. OMEPRAZOLE [Interacting]
     Active Substance: OMEPRAZOLE
     Indication: Reflux laryngitis
     Dosage: 200 MILLIGRAM, QD
     Route: 048
     Dates: start: 20190118, end: 20190120
  3. OMEPRAZOLE [Interacting]
     Active Substance: OMEPRAZOLE
     Indication: Urinary tract infection
     Dosage: 200 MILLIGRAM, QD
     Route: 048
     Dates: start: 20190118, end: 20190120
  4. OMEPRAZOLE [Interacting]
     Active Substance: OMEPRAZOLE
     Indication: Gastrooesophageal reflux disease
     Dosage: 20 MILLIGRAM20.0MG UNKNOWN
     Route: 048
     Dates: start: 20190118, end: 20190120
  5. OMEPRAZOLE [Interacting]
     Active Substance: OMEPRAZOLE
     Indication: Reflux laryngitis
     Dosage: 20 MILLIGRAM20.0MG UNKNOWN
     Route: 048
     Dates: start: 20190118, end: 20190120
  6. OMEPRAZOLE [Interacting]
     Active Substance: OMEPRAZOLE
     Indication: Urinary tract infection
     Dosage: 20 MILLIGRAM20.0MG UNKNOWN
     Route: 048
     Dates: start: 20190118, end: 20190120
  7. OMEPRAZOLE [Interacting]
     Active Substance: OMEPRAZOLE
     Indication: Gastrooesophageal reflux disease
     Dosage: 200 MILLIGRAM, QD400.0MG UNKNOWN
     Route: 048
     Dates: start: 20190118, end: 20190120
  8. OMEPRAZOLE [Interacting]
     Active Substance: OMEPRAZOLE
     Indication: Reflux laryngitis
     Dosage: 200 MILLIGRAM, QD400.0MG UNKNOWN
     Route: 048
     Dates: start: 20190118, end: 20190120
  9. OMEPRAZOLE [Interacting]
     Active Substance: OMEPRAZOLE
     Indication: Urinary tract infection
     Dosage: 200 MILLIGRAM, QD400.0MG UNKNOWN
     Route: 048
     Dates: start: 20190118, end: 20190120
  10. MODERNA COVID-19 VACCINE [Suspect]
     Active Substance: ELASOMERAN
     Indication: COVID-19 prophylaxis
     Dosage: DOSE 3B, 1 DOSAGE FORM, SINGLE1.0DF ONCE/SINGLE ADMINISTRATION
     Route: 030
     Dates: start: 20211204, end: 20211204
  11. SOLIFENACIN [Interacting]
     Active Substance: SOLIFENACIN
     Indication: Product used for unknown indication
     Dosage: UNK (FILM-COATED TABLET) ROUTE:065
     Route: 048
  12. TRIMETHOPRIM [Interacting]
     Active Substance: TRIMETHOPRIM
     Indication: Urinary tract infection
     Dosage: 200 MG, QD (200 MILLIGRAM, ONCE A DAY)
     Route: 048
     Dates: start: 20190118, end: 20190120
  13. TRIMETHOPRIM [Interacting]
     Active Substance: TRIMETHOPRIM
     Indication: Urinary tract infection
     Dosage: 1200 MILLIGRAM, UNK
     Route: 065
     Dates: start: 20190118
  14. TRIMETHOPRIM [Interacting]
     Active Substance: TRIMETHOPRIM
     Indication: Urinary tract infection
     Dosage: 1200 MILLIGRAM, UNK
     Route: 065
  15. TRIMETHOPRIM [Interacting]
     Active Substance: TRIMETHOPRIM
     Indication: Urinary tract infection
     Dosage: 200 MG, QD (200 MILLIGRAM, ONCE A DAY)
     Route: 048
     Dates: start: 20190118, end: 20190120
  16. TRIMETHOPRIM [Interacting]
     Active Substance: TRIMETHOPRIM
     Indication: Urinary tract infection
     Dosage: 200 MG, QD (200 MILLIGRAM, ONCE A DAY)
     Route: 048
     Dates: start: 20191018, end: 20191020
  17. DOMPERIDONE [Interacting]
     Active Substance: DOMPERIDONE
     Indication: Product used for unknown indication
     Dosage: UNKNOWN
     Route: 048
  18. LANSOPRAZOLE [Interacting]
     Active Substance: LANSOPRAZOLE
     Indication: Product used for unknown indication
     Dosage: UNKNOWN
     Route: 065
     Dates: end: 20211204
  19. LANSOPRAZOLE [Interacting]
     Active Substance: LANSOPRAZOLE
     Indication: Pruritus
     Dosage: UNKNOWN
     Route: 065
     Dates: end: 20211204
  20. BECLOMETHASONE DIPROPIONATE [Concomitant]
     Active Substance: BECLOMETHASONE DIPROPIONATE
     Indication: Product used for unknown indication
     Dosage: UNK UNK, UNKNOWN FREQ.
     Route: 065
     Dates: end: 20190102
  21. DULOXETINE [Concomitant]
     Active Substance: DULOXETINE
     Indication: Product used for unknown indication
     Dosage: UNKNOWN
     Route: 065
  22. TRIMETHOPRIM [Concomitant]
     Active Substance: TRIMETHOPRIM
     Indication: Urinary tract infection

REACTIONS (22)
  - Abdominal pain [Recovered/Resolved]
  - Blood potassium decreased [Unknown]
  - Oral pain [Recovered/Resolved]
  - Mucosal inflammation [Recovered/Resolved]
  - Genital pain [Recovered/Resolved]
  - Feeling abnormal [Unknown]
  - Illness [Recovering/Resolving]
  - Food poisoning [Not Recovered/Not Resolved]
  - Vomiting [Unknown]
  - Drug interaction [Unknown]
  - Peripheral swelling [Unknown]
  - Diarrhoea [Recovered/Resolved]
  - Irritable bowel syndrome [Unknown]
  - Condition aggravated [Unknown]
  - Gastrointestinal pain [Not Recovered/Not Resolved]
  - Contusion [Not Recovered/Not Resolved]
  - Nightmare [Not Recovered/Not Resolved]
  - Blood sodium decreased [Unknown]
  - Abdominal pain upper [Recovering/Resolving]
  - Genital ulceration [Recovered/Resolved]
  - Malaise [Unknown]
  - Dementia [Unknown]

NARRATIVE: CASE EVENT DATE: 20190121
